FAERS Safety Report 5840690-X (Version None)
Quarter: 2008Q3

REPORT INFORMATION
  Report Type: 
  Country: None (occurrence: None)
  Receive Date: 20080811
  Receipt Date: 20080805
  Transmission Date: 20090109
  Serious: Yes (Death, Hospitalization, Other)
  Sender: FDA-Public Use
  Company Number: PHEH2006US03538

PATIENT

DRUGS (3)
  1. ZOMETA [Suspect]
     Indication: PROSTATE CANCER
     Dosage: UNK, UNK
  2. PREDNISONE [Concomitant]
     Dosage: UNK, UNK
  3. LUPRON [Suspect]
     Dosage: UNK, UNK

REACTIONS (14)
  - BACK PAIN [None]
  - BLADDER ADENOCARCINOMA STAGE UNSPECIFIED [None]
  - BONE DISORDER [None]
  - DEATH [None]
  - HEPATIC ISCHAEMIA [None]
  - INFLAMMATION [None]
  - METASTASES TO BONE [None]
  - METASTASES TO LIVER [None]
  - ORAL SURGERY [None]
  - OSTEONECROSIS [None]
  - PAIN IN EXTREMITY [None]
  - PAIN IN JAW [None]
  - SINUS TACHYCARDIA [None]
  - VENOOCCLUSIVE LIVER DISEASE [None]
